FAERS Safety Report 19315561 (Version 1)
Quarter: 2021Q2

REPORT INFORMATION
  Report Type: Spontaneous
  Country: DE (occurrence: FI)
  Receive Date: 20210527
  Receipt Date: 20210527
  Transmission Date: 20210717
  Serious: Yes (Hospitalization, Other)
  Sender: FDA-Public Use
  Company Number: FI-ENDO PHARMACEUTICALS INC-2021-007796

PATIENT
  Sex: Male
  Weight: 107 kg

DRUGS (9)
  1. SILDENAFIL. [Concomitant]
     Active Substance: SILDENAFIL
     Indication: ERECTILE DYSFUNCTION
     Dosage: UNK UNKNOWN, UNKNOWN
     Route: 065
  2. AVEED [Suspect]
     Active Substance: TESTOSTERONE UNDECANOATE
     Dosage: UNKNOWN, 2ND INJECTION
     Route: 065
     Dates: start: 200902
  3. MORPHINE [Concomitant]
     Active Substance: MORPHINE
     Indication: PRODUCT USED FOR UNKNOWN INDICATION
     Dosage: UNK UNKNOWN, UNKNOWN
     Route: 065
     Dates: start: 2018
  4. AVEED [Suspect]
     Active Substance: TESTOSTERONE UNDECANOATE
     Dosage: UNKNOWN, 10?11 WEEK INTERVAL
     Route: 065
     Dates: start: 201804, end: 201907
  5. AVEED [Suspect]
     Active Substance: TESTOSTERONE UNDECANOATE
     Dosage: UNKNOWN, 6?8 WEEK INTERVAL
     Route: 065
     Dates: start: 201909
  6. AVEED [Suspect]
     Active Substance: TESTOSTERONE UNDECANOATE
     Dosage: UNKNOWN, 3RD INJECTION
     Route: 065
     Dates: start: 200905
  7. TESTOSTERONE. [Concomitant]
     Active Substance: TESTOSTERONE
     Indication: PRODUCT USED FOR UNKNOWN INDICATION
     Dosage: UNK UNKNOWN, UNKNOWN
     Route: 065
     Dates: start: 201908
  8. AVEED [Suspect]
     Active Substance: TESTOSTERONE UNDECANOATE
     Indication: PRODUCT USED FOR UNKNOWN INDICATION
     Dosage: UNKNOWN, 1ST INJECTION
     Route: 065
     Dates: start: 200901
  9. OTHER THERAPEUTIC PRODUCTS [Concomitant]
     Active Substance: UNSPECIFIED INGREDIENT
     Indication: ILL-DEFINED DISORDER
     Dosage: UNK UNKNOWN, UNKNOWN
     Route: 065

REACTIONS (13)
  - Therapeutic response shortened [Unknown]
  - Wrong technique in product usage process [Unknown]
  - Urinary retention [Unknown]
  - Weight decreased [Unknown]
  - Urine odour abnormal [Recovered/Resolved]
  - Urinary tract disorder [Unknown]
  - Calculus urinary [Recovered/Resolved]
  - Therapeutic response unexpected [Unknown]
  - Hyperhidrosis [Unknown]
  - Injection site pain [Unknown]
  - Blood triglycerides increased [Unknown]
  - Product prescribing issue [Unknown]
  - Off label use [Unknown]

NARRATIVE: CASE EVENT DATE: 2009
